FAERS Safety Report 4388426-6 (Version None)
Quarter: 2004Q3

REPORT INFORMATION
  Report Type: 
  Country: None (occurrence: None)
  Receive Date: 20040701
  Receipt Date: 20040625
  Transmission Date: 20050211
  Serious: Yes (Death)
  Sender: FDA-Public Use
  Company Number: DK-ROCHE-372000

PATIENT
  Age: 59 Year

DRUGS (6)
  1. RIVOTRIL [Suspect]
     Indication: DRUG USE FOR UNKNOWN INDICATION
     Route: 048
     Dates: end: 20040615
  2. FUROSEMIDE [Concomitant]
     Route: 048
  3. KALEORID [Concomitant]
     Route: 048
  4. PRIMCILLIN [Concomitant]
     Route: 048
     Dates: end: 20040615
  5. DICLOSIL [Concomitant]
     Route: 048
     Dates: end: 20040615
  6. VALPROATE SODIUM [Concomitant]

REACTIONS (2)
  - HEPATIC FAILURE [None]
  - MULTI-ORGAN FAILURE [None]
